FAERS Safety Report 9937031 (Version 1)
Quarter: 2014Q1

REPORT INFORMATION
  Report Type: Spontaneous
  Country: US (occurrence: None)
  Receive Date: 20140122
  Receipt Date: 20140122
  Transmission Date: 20141002
  Serious: No
  Sender: FDA-Public Use
  Company Number: AP356-00276-SPO-US

PATIENT
  Age: 38 Year
  Sex: Female
  Weight: 111.3 kg

DRUGS (2)
  1. BELVIQ (LORCASERIN HYDROCHLORIDE) [Suspect]
     Indication: WEIGHT DECREASED
     Route: 048
     Dates: start: 20131029, end: 201311
  2. METFORMIN (METFORMIN) [Concomitant]

REACTIONS (3)
  - Muscular weakness [None]
  - Oedema peripheral [None]
  - Fatigue [None]
